FAERS Safety Report 9798518 (Version 1)
Quarter: 2014Q1

REPORT INFORMATION
  Report Type: Spontaneous
  Country: US (occurrence: US)
  Receive Date: 20140106
  Receipt Date: 20140106
  Transmission Date: 20141002
  Serious: No
  Sender: FDA-Public Use
  Company Number: US-BAYER-2014-001689

PATIENT
  Sex: 0

DRUGS (2)
  1. ALEVE CAPLET [Suspect]
     Indication: MIGRAINE PROPHYLAXIS
     Dosage: UNK, QD
     Route: 048
  2. IMITREX [Concomitant]
     Dosage: 15 PER MONTH ON AVERAGE

REACTIONS (3)
  - Off label use [None]
  - Incorrect drug administration duration [None]
  - Migraine [None]
